FAERS Safety Report 13480669 (Version 9)
Quarter: 2017Q4

REPORT INFORMATION
  Report Type: Report from Study
  Country: US (occurrence: US)
  Receive Date: 20170425
  Receipt Date: 20171006
  Transmission Date: 20180320
  Serious: Yes (Other)
  Sender: FDA-Public Use
  Company Number: US-ACTELION-A-US2017-152917

PATIENT
  Age: 72 Year
  Sex: Female
  Weight: 99.77 kg

DRUGS (4)
  1. SILDENAFIL CITRATE. [Concomitant]
     Active Substance: SILDENAFIL CITRATE
  2. OPSUMIT [Suspect]
     Active Substance: MACITENTAN
     Indication: PULMONARY ARTERIAL HYPERTENSION
     Dosage: 10 MG, QD
     Route: 048
  3. REMODULIN [Suspect]
     Active Substance: TREPROSTINIL
     Indication: PRODUCT USED FOR UNKNOWN INDICATION
     Dosage: 36 NG/KG, PER MIN
     Route: 065
  4. ADEMPAS [Concomitant]
     Active Substance: RIOCIGUAT
     Dosage: 1.5 MG, BID

REACTIONS (11)
  - Irritable bowel syndrome [Unknown]
  - Eating disorder [Unknown]
  - Unevaluable event [Unknown]
  - Decreased appetite [Unknown]
  - Sleep disorder [Unknown]
  - Abdominal pain upper [Unknown]
  - Dyspnoea exertional [Not Recovered/Not Resolved]
  - Renal neoplasm [Unknown]
  - Weight decreased [Unknown]
  - Diarrhoea [Unknown]
  - Dysgeusia [Unknown]

NARRATIVE: CASE EVENT DATE: 20170516
